FAERS Safety Report 6117205-4 (Version None)
Quarter: 2009Q1

REPORT INFORMATION
  Report Type: 
  Country: None (occurrence: None)
  Receive Date: 20090314
  Receipt Date: 20090204
  Transmission Date: 20090719
  Serious: No
  Sender: FDA-Public Use
  Company Number: US-ABBOTT-09P-163-0496128-00

PATIENT
  Sex: Female
  Weight: 45.854 kg

DRUGS (4)
  1. HUMIRA [Suspect]
     Indication: CROHN'S DISEASE
     Route: 058
     Dates: start: 20081101
  2. KLONOPIN [Concomitant]
     Indication: INSOMNIA
  3. TOPROL-XL [Concomitant]
     Indication: EJECTION FRACTION DECREASED
  4. DIOVAN [Concomitant]
     Indication: EJECTION FRACTION DECREASED

REACTIONS (7)
  - ABDOMINAL PAIN [None]
  - ANAEMIA [None]
  - CROHN'S DISEASE [None]
  - FATIGUE [None]
  - MENSTRUAL DISORDER [None]
  - THROMBOCYTHAEMIA [None]
  - UTERINE LEIOMYOMA [None]
